FAERS Safety Report 8236887-4 (Version None)
Quarter: 2012Q1

REPORT INFORMATION
  Report Type: 
  Country: None (occurrence: None)
  Receive Date: 20120327
  Receipt Date: 20110413
  Transmission Date: 20120608
  Serious: No
  Sender: FDA-Public Use
  Company Number: US-GLAXOSMITHKLINE-A0922855A

PATIENT
  Age: 84 Year
  Sex: Female

DRUGS (4)
  1. NEXIUM [Concomitant]
  2. ANTIBIOTIC [Concomitant]
  3. ALLERGY MEDICATION [Concomitant]
  4. LUXIQ [Suspect]
     Indication: PSORIASIS
     Dosage: 1APP AT NIGHT
     Route: 061
     Dates: start: 20110413

REACTIONS (3)
  - PAIN [None]
  - DRUG INEFFECTIVE [None]
  - HEADACHE [None]
